FAERS Safety Report 9500187 (Version 1)
Quarter: 2013Q3

REPORT INFORMATION
  Report Type: Spontaneous
  Country: US (occurrence: US)
  Receive Date: 20130905
  Receipt Date: 20130905
  Transmission Date: 20140515
  Serious: No
  Sender: FDA-Public Use
  Company Number: US-BAYER-2013-107120

PATIENT
  Age: 38 Year
  Sex: Female
  Weight: 90.7 kg

DRUGS (2)
  1. ALEVE GELCAPS [Suspect]
     Dosage: 1 DF, PRN
     Route: 048
     Dates: start: 20130826, end: 20130827
  2. LORATADINE [Concomitant]

REACTIONS (3)
  - Urticaria [Not Recovered/Not Resolved]
  - Urticaria [Not Recovered/Not Resolved]
  - Throat irritation [Recovered/Resolved]
